FAERS Safety Report 7099154-0 (Version None)
Quarter: 2010Q4

REPORT INFORMATION
  Report Type: 
  Country: None (occurrence: None)
  Receive Date: 20101112
  Receipt Date: 20101104
  Transmission Date: 20110411
  Serious: Yes (Other)
  Sender: FDA-Public Use
  Company Number: US-JNJCH-2010025611

PATIENT
  Age: 45 Year
  Sex: Male
  Weight: 106.6 kg

DRUGS (1)
  1. LUBRIDERM DAILY MOISTURE WITH SPF 15 [Suspect]
     Indication: PROPHYLAXIS
     Dosage: TEXT:ONE OR TWO TIMES A DAY
     Route: 061
     Dates: start: 20101015, end: 20101102

REACTIONS (3)
  - DERMATITIS ALLERGIC [None]
  - SKIN CHAPPED [None]
  - WOUND SECRETION [None]
